FAERS Safety Report 6142122-3 (Version None)
Quarter: 2009Q2

REPORT INFORMATION
  Report Type: 
  Country: None (occurrence: None)
  Receive Date: 20090402
  Receipt Date: 20090325
  Transmission Date: 20091009
  Serious: Yes (Hospitalization, Other)
  Sender: FDA-Public Use
  Company Number: US-AMGEN-US333834

PATIENT
  Sex: Female
  Weight: 73.1 kg

DRUGS (20)
  1. EPOGEN [Suspect]
     Indication: ANAEMIA
     Route: 058
     Dates: start: 20080101
  2. VENOFER [Concomitant]
     Route: 042
  3. TESSALON [Concomitant]
  4. REQUIP [Concomitant]
  5. ZOLOFT [Concomitant]
  6. SIMVASTATIN [Concomitant]
  7. GABAPENTIN [Concomitant]
  8. PHOSLO [Concomitant]
  9. PLAVIX [Concomitant]
  10. NEXIUM [Concomitant]
  11. ASPIRIN [Concomitant]
  12. BIOTIN [Concomitant]
  13. SPIRIVA [Concomitant]
  14. LANTUS [Concomitant]
  15. ADVAIR HFA [Concomitant]
  16. QUININE SULFATE [Concomitant]
  17. LASIX [Concomitant]
  18. METOPROLOL [Concomitant]
  19. METRONIDAZOLE [Concomitant]
  20. BACLOFEN [Concomitant]

REACTIONS (8)
  - ACUTE MYOCARDIAL INFARCTION [None]
  - AORTIC STENOSIS [None]
  - CARDIAC FAILURE CONGESTIVE [None]
  - CHEST PAIN [None]
  - DIABETIC FOOT [None]
  - HEADACHE [None]
  - ISCHAEMIC CARDIOMYOPATHY [None]
  - THERAPEUTIC RESPONSE DECREASED [None]
